FAERS Safety Report 5449350-0 (Version None)
Quarter: 2007Q3

REPORT INFORMATION
  Report Type: 
  Country: None (occurrence: None)
  Receive Date: 20070911
  Receipt Date: 20070829
  Transmission Date: 20080115
  Serious: Yes (Hospitalization)
  Sender: FDA-Public Use
  Company Number: US-GENENTECH-247142

PATIENT
  Sex: Female
  Weight: 54.875 kg

DRUGS (1)
  1. BEVACIZUMAB [Suspect]
     Indication: NON-SMALL CELL LUNG CANCER
     Dosage: 864 MG, UNK
     Route: 042
     Dates: start: 20070807

REACTIONS (1)
  - ATRIAL FIBRILLATION [None]
